FAERS Safety Report 5758089-3 (Version None)
Quarter: 2008Q2

REPORT INFORMATION
  Report Type: 
  Country: None (occurrence: None)
  Receive Date: 20080602
  Receipt Date: 20080602
  Transmission Date: 20081010
  Serious: Yes (Hospitalization)
  Sender: FDA-Public Use
  Company Number: None

PATIENT
  Age: 53 Year
  Sex: Female
  Weight: 65.318 kg

DRUGS (6)
  1. PACLITAXEL [Suspect]
     Indication: BREAST CANCER METASTATIC
     Dosage: QW;IV
     Route: 042
     Dates: start: 20080117, end: 20080424
  2. AEG35156 [Suspect]
     Indication: BREAST CANCER METASTATIC
     Dosage: 350 MG;QW;IV
     Route: 042
     Dates: start: 20080115, end: 20080424
  3. COMPAZINE [Concomitant]
  4. VICODIN [Concomitant]
  5. ZOLOFT [Concomitant]
  6. TAMOXIFEN CITRATE [Concomitant]

REACTIONS (16)
  - AMMONIA INCREASED [None]
  - ASPARTATE AMINOTRANSFERASE INCREASED [None]
  - ATELECTASIS [None]
  - BLOOD BILIRUBIN INCREASED [None]
  - BLOOD UREA INCREASED [None]
  - GENERALISED OEDEMA [None]
  - HEPATIC FUNCTION ABNORMAL [None]
  - HYPERKALAEMIA [None]
  - HYPONATRAEMIA [None]
  - INTERNATIONAL NORMALISED RATIO INCREASED [None]
  - NAUSEA [None]
  - NEUROPATHY PERIPHERAL [None]
  - PLEURAL EFFUSION [None]
  - PORTAL VEIN THROMBOSIS [None]
  - SPLENIC VEIN THROMBOSIS [None]
  - VOMITING [None]
